FAERS Safety Report 5517397-1 (Version None)
Quarter: 2007Q4

REPORT INFORMATION
  Report Type: 
  Country: None (occurrence: None)
  Receive Date: 20071109
  Receipt Date: 20071029
  Transmission Date: 20080405
  Serious: Yes (Other)
  Sender: FDA-Public Use
  Company Number: 2007CH003888

PATIENT
  Age: 52 Year
  Sex: Male

DRUGS (5)
  1. ALOXI [Suspect]
     Indication: PROPHYLAXIS OF NAUSEA AND VOMITING
     Dosage: 0.25 MG, SINGLE, INTRAVENOUS
     Route: 042
     Dates: start: 20070921, end: 20070921
  2. TAXOL [Suspect]
     Indication: CHEMOTHERAPY
     Dates: start: 20070724
  3. DEXAMETHASONE TAB [Concomitant]
  4. TAVEGYL /00137201/ (CLEMASTINE) [Concomitant]
  5. RANITIDINE HCL [Concomitant]

REACTIONS (3)
  - ANAPHYLACTOID REACTION [None]
  - BRONCHOSPASM [None]
  - LOSS OF CONSCIOUSNESS [None]
